FAERS Safety Report 22596571 (Version 2)
Quarter: 2023Q2

REPORT INFORMATION
  Report Type: Spontaneous
  Country: CZ (occurrence: CZ)
  Receive Date: 20230613
  Receipt Date: 20230627
  Transmission Date: 20230722
  Serious: Yes (Other)
  Sender: FDA-Public Use
  Company Number: CZ-MYLANLABS-2023M1061311

PATIENT
  Age: 58 Year
  Sex: Female

DRUGS (2)
  1. SUNITINIB [Suspect]
     Active Substance: SUNITINIB
     Indication: Renal cell carcinoma
     Dosage: UNK
     Route: 065
     Dates: start: 201912, end: 202102
  2. SUNITINIB [Suspect]
     Active Substance: SUNITINIB
     Indication: Metastatic renal cell carcinoma

REACTIONS (7)
  - Disease progression [Recovered/Resolved]
  - Metastatic renal cell carcinoma [Recovering/Resolving]
  - Malignant neoplasm progression [Recovering/Resolving]
  - Oesophagitis [Unknown]
  - Gastrointestinal disorder [Not Recovered/Not Resolved]
  - Therapy partial responder [Recovering/Resolving]
  - Drug ineffective [Recovered/Resolved]

NARRATIVE: CASE EVENT DATE: 20210201
